FAERS Safety Report 10381806 (Version 1)
Quarter: 2014Q3

REPORT INFORMATION
  Report Type: Spontaneous
  Country: US (occurrence: US)
  Receive Date: 20140813
  Receipt Date: 20140813
  Transmission Date: 20150326
  Serious: Yes (Other)
  Sender: FDA-Public Use
  Company Number: US-ACTELION-A-US2014-103380

PATIENT
  Age: 23 Year
  Sex: Female

DRUGS (2)
  1. FLOLAN [Suspect]
     Active Substance: EPOPROSTENOL SODIUM
     Indication: PULMONARY ARTERIAL HYPERTENSION
     Dosage: 21 NG/KG, PER MIN
     Route: 042
     Dates: start: 20130711
  2. OPSUMIT [Suspect]
     Active Substance: MACITENTAN
     Indication: PULMONARY ARTERIAL HYPERTENSION
     Dosage: UNK
     Route: 048
     Dates: start: 20131127

REACTIONS (8)
  - Device alarm issue [Unknown]
  - Catheter site pain [Unknown]
  - Nasal congestion [Unknown]
  - Catheter site infection [Unknown]
  - Weight decreased [Unknown]
  - Pyrexia [Unknown]
  - Medical device complication [Unknown]
  - Cough [Unknown]

NARRATIVE: CASE EVENT DATE: 20140415
